FAERS Safety Report 15233688 (Version 2)
Quarter: 2018Q3

REPORT INFORMATION
  Report Type: Spontaneous
  Country: US (occurrence: US)
  Receive Date: 20180802
  Receipt Date: 20180809
  Transmission Date: 20181010
  Serious: Yes (Life-Threatening, Hospitalization)
  Sender: FDA-Public Use
  Company Number: US-ACTELION-A-US2018-176482

PATIENT
  Age: 10 Month
  Sex: Female

DRUGS (15)
  1. LASIX [Concomitant]
     Active Substance: FUROSEMIDE
     Dosage: .07 ML, Q12HRS
     Route: 048
  2. TYLENOL [Concomitant]
     Active Substance: ACETAMINOPHEN
     Dosage: 2.7 ML, Q6HRS
     Route: 048
  3. VITAMIN D3 [Concomitant]
     Active Substance: CHOLECALCIFEROL
     Dosage: 1 ML, UNK
     Route: 048
  4. DIGOXIN. [Concomitant]
     Active Substance: DIGOXIN
     Dosage: 0.5 ML, Q12HRS
     Route: 048
  5. COLACE [Concomitant]
     Active Substance: DOCUSATE SODIUM
     Dosage: UNK, BID
     Route: 048
  6. OXYGEN. [Concomitant]
     Active Substance: OXYGEN
     Dosage: 0.25 L/MIN, UNK
  7. ASPIRIN 81 [Concomitant]
     Active Substance: ASPIRIN
     Dosage: 0.25 MG, QD
     Route: 048
  8. GLYCERIN SUPPOSITORIES [Concomitant]
     Dosage: UNK, PRN
     Route: 054
  9. SILDENAFIL. [Concomitant]
     Active Substance: SILDENAFIL
     Indication: PULMONARY ARTERIAL HYPERTENSION
     Dosage: 10 MG, QID
     Route: 048
  10. ENULOSE [Concomitant]
     Active Substance: LACTULOSE
     Dosage: 7 ML, UNK
  11. REGLAN [Concomitant]
     Active Substance: METOCLOPRAMIDE HYDROCHLORIDE
     Dosage: 0.5 ML, Q6HRS
     Route: 048
  12. TRACLEER [Suspect]
     Active Substance: BOSENTAN
     Indication: PULMONARY HYPERTENSION
     Dosage: 0.8 ML, Q12HRS
     Route: 048
  13. DIURIL [Concomitant]
     Active Substance: CHLOROTHIAZIDE
     Dosage: 1.2 ML, UNK
     Route: 048
  14. SPIRONOLACTONE. [Concomitant]
     Active Substance: SPIRONOLACTONE
     Dosage: 2.5 MG, UNK
     Route: 048
  15. SIMETHICONE (DIMETHICONE) [Concomitant]
     Active Substance: DIMETHICONE
     Dosage: 40 MG, QID
     Route: 048

REACTIONS (11)
  - Univentricular heart [Unknown]
  - Cystic fibrosis [Unknown]
  - Weight gain poor [Unknown]
  - Vocal cord paralysis [Unknown]
  - Oxygen therapy [Unknown]
  - Venous thrombosis [Unknown]
  - Vomiting [Unknown]
  - Pulmonary artery stenosis [Unknown]
  - Hypoxia [Unknown]
  - Tricuspid valve disease [Unknown]
  - Embedded device [Unknown]
